FAERS Safety Report 4741627-7 (Version None)
Quarter: 2005Q3

REPORT INFORMATION
  Report Type: 
  Country: None (occurrence: None)
  Receive Date: 20050801
  Receipt Date: 20050623
  Transmission Date: 20060218
  Serious: No
  Sender: FDA-Public Use
  Company Number: 2005PV000140

PATIENT
  Age: 71 Year
  Sex: Male
  Weight: 92.4431 kg

DRUGS (16)
  1. BYETTA [Suspect]
     Indication: DIABETES MELLITUS NON-INSULIN-DEPENDENT
     Dosage: 5 UG; BID; SC
     Route: 058
     Dates: start: 20050601, end: 20050601
  2. BYETTA [Suspect]
     Indication: DIABETES MELLITUS NON-INSULIN-DEPENDENT
     Dosage: 5 UG; BID; SC
     Route: 058
     Dates: start: 20050616, end: 20050601
  3. AMARYL [Concomitant]
  4. AVANDIA [Concomitant]
  5. MULTIVIT [Concomitant]
  6. ASPIRIN [Concomitant]
  7. CRESTOR [Concomitant]
  8. CLONIDINE [Concomitant]
  9. ALLOPURINOL [Concomitant]
  10. LASIX [Concomitant]
  11. POTASSIUM CHLORIDE [Concomitant]
  12. LISINOPRIL [Concomitant]
  13. HYTRIN [Concomitant]
  14. ZANTAC [Concomitant]
  15. COREG [Concomitant]
  16. ULTRACET [Concomitant]

REACTIONS (1)
  - ABDOMINAL PAIN [None]
